FAERS Safety Report 6300204-7 (Version None)
Quarter: 2009Q3

REPORT INFORMATION
  Report Type: 
  Country: None (occurrence: None)
  Receive Date: 20090806
  Receipt Date: 20090729
  Transmission Date: 20100115
  Serious: Yes (Hospitalization)
  Sender: FDA-Public Use
  Company Number: CH-AMGEN-UK355589

PATIENT
  Sex: Female

DRUGS (4)
  1. ROMIPLOSTIM [Suspect]
     Indication: IDIOPATHIC THROMBOCYTOPENIC PURPURA
     Route: 058
     Dates: start: 20090612
  2. CYCLOKAPRON [Concomitant]
  3. YASMIN [Concomitant]
     Route: 048
  4. FOLVITE [Concomitant]
     Route: 048

REACTIONS (4)
  - ABDOMINAL PAIN [None]
  - MONONEUROPATHY MULTIPLEX [None]
  - PYELONEPHRITIS [None]
  - RENAL DISORDER [None]
